FAERS Safety Report 4541121-2 (Version None)
Quarter: 2004Q4

REPORT INFORMATION
  Report Type: 
  Country: None (occurrence: None)
  Receive Date: 20041228
  Receipt Date: 20041221
  Transmission Date: 20050328
  Serious: Yes (Death, Hospitalization)
  Sender: FDA-Public Use
  Company Number: F01200403671

PATIENT
  Age: 79 Year
  Sex: Male

DRUGS (12)
  1. OXALIPLATIN - SOLUTION - 85 MG/M2 / SOLUTION - 89 MG [Suspect]
     Indication: COLORECTAL CANCER METASTATIC
     Dosage: 126 MG Q2W / 89 MG Q2W INTRAVENOUS NOS
     Route: 042
     Dates: start: 20041123, end: 20041123
  2. OXALIPLATIN - SOLUTION - 85 MG/M2 / SOLUTION - 89 MG [Suspect]
     Indication: COLORECTAL CANCER METASTATIC
     Dosage: 126 MG Q2W / 89 MG Q2W INTRAVENOUS NOS
     Route: 042
  3. FLUOROURACIL [Suspect]
     Dosage: 592 MG Q2W / 410 MG IV BOLUS AND 685 MG IV CONTINUOUS INFUSION INTRAVENOUS NOS
     Route: 042
     Dates: start: 20041123, end: 20041124
  4. FLUOROURACIL [Suspect]
     Dosage: 592 MG Q2W / 410 MG IV BOLUS AND 685 MG IV CONTINUOUS INFUSION INTRAVENOUS NOS
     Route: 042
  5. LEUCOVORIN - SOLUTION - 200 MG/M2  / SOLUTION - 89 MG [Suspect]
     Dosage: 296 MG Q2W / 89 MG Q2W INTRAVENOUS NOS
     Route: 042
     Dates: start: 20041123, end: 20041123
  6. LEUCOVORIN - SOLUTION - 200 MG/M2  / SOLUTION - 89 MG [Suspect]
     Dosage: 296 MG Q2W / 89 MG Q2W INTRAVENOUS NOS
     Route: 042
  7. BEVACIZUMAB OR PLACEBO - SOLUTION - 240 MG / SOLUTION [Suspect]
     Dosage: 240 MG Q2W INTRAVENOUS NOS
     Route: 042
     Dates: start: 20041123, end: 20041123
  8. BEVACIZUMAB OR PLACEBO - SOLUTION - 240 MG / SOLUTION [Suspect]
     Dosage: 240 MG Q2W INTRAVENOUS NOS
     Route: 042
  9. DEXAMETHASONE [Concomitant]
  10. ONDANSETRON (ONDANSETRON HYDROCHLORIDE) [Concomitant]
  11. DOMPERIDONE [Concomitant]
  12. BACLOFEN [Concomitant]

REACTIONS (16)
  - ACTIVATED PARTIAL THROMBOPLASTIN TIME PROLONGED [None]
  - BLOOD CORTISOL INCREASED [None]
  - BLOOD CREATININE INCREASED [None]
  - BLOOD UREA INCREASED [None]
  - FEBRILE NEUTROPENIA [None]
  - HAEMATOCRIT DECREASED [None]
  - HAEMOGLOBIN DECREASED [None]
  - HICCUPS [None]
  - HYPOTENSION [None]
  - MULTI-ORGAN FAILURE [None]
  - NAUSEA [None]
  - PLATELET COUNT DECREASED [None]
  - PROTHROMBIN TIME PROLONGED [None]
  - RESPIRATORY FAILURE [None]
  - VOMITING [None]
  - WHITE BLOOD CELL COUNT DECREASED [None]
